FAERS Safety Report 5082135-6 (Version None)
Quarter: 2006Q3

REPORT INFORMATION
  Report Type: 
  Country: None (occurrence: None)
  Receive Date: 20060817
  Receipt Date: 20060807
  Transmission Date: 20061208
  Serious: Yes (Life-Threatening, Other)
  Sender: FDA-Public Use
  Company Number: CN-JNJFOC-20060801857

PATIENT
  Age: 68 Year
  Sex: Female

DRUGS (2)
  1. CAELYX [Suspect]
     Indication: ACUTE MONOCYTIC LEUKAEMIA
     Route: 042
  2. GLUTATHIONE [Concomitant]
     Route: 042

REACTIONS (3)
  - ATRIAL FIBRILLATION [None]
  - INFUSION RELATED REACTION [None]
  - VENTRICULAR EXTRASYSTOLES [None]
